FAERS Safety Report 16771516 (Version 1)
Quarter: 2019Q3

REPORT INFORMATION
  Report Type: Spontaneous
  Country: CA (occurrence: CA)
  Receive Date: 20190904
  Receipt Date: 20190904
  Transmission Date: 20191005
  Serious: Yes (Death, Life-Threatening, Hospitalization)
  Sender: FDA-Public Use
  Company Number: CA-PFIZER INC-2019381317

PATIENT
  Age: 67 Year
  Sex: Male

DRUGS (5)
  1. ENOXAPARIN SODIUM. [Concomitant]
     Active Substance: ENOXAPARIN SODIUM
     Dosage: UNK
  2. HEPARIN SODIUM. [Suspect]
     Active Substance: HEPARIN SODIUM
     Dosage: 50000 IU, UNK
     Route: 065
  3. HEPARIN SODIUM. [Suspect]
     Active Substance: HEPARIN SODIUM
     Dosage: 5000 IU, 2X/DAY (1 EVERY 12 HOURS)
     Route: 058
  4. HEPARIN SODIUM. [Suspect]
     Active Substance: HEPARIN SODIUM
     Dosage: 50000 IU, SINGLE (TOTAL)
  5. LOVENOX [Concomitant]
     Active Substance: ENOXAPARIN SODIUM
     Dosage: UNK

REACTIONS (7)
  - Intestinal infarction [Fatal]
  - Platelet disorder [Fatal]
  - Abdominal pain upper [Fatal]
  - Renal failure [Fatal]
  - Sepsis [Fatal]
  - Heparin-induced thrombocytopenia [Fatal]
  - Lethargy [Fatal]
